FAERS Safety Report 9384328 (Version 1)
Quarter: 2013Q3

REPORT INFORMATION
  Report Type: Report from Study
  Country: AU (occurrence: AU)
  Receive Date: 20130705
  Receipt Date: 20130705
  Transmission Date: 20140515
  Serious: Yes (Other)
  Sender: FDA-Public Use
  Company Number: PHHY2013AU006905

PATIENT
  Age: 56 Year
  Sex: Female

DRUGS (5)
  1. FEMARA [Suspect]
     Indication: BREAST CANCER
     Dosage: UNK
     Route: 048
     Dates: start: 201208
  2. INSULIN [Concomitant]
     Dosage: UNK UKN, UNK
  3. NEXIUM I.V. [Concomitant]
  4. GLUCOSAMINE [Concomitant]
  5. THYROXIN [Concomitant]

REACTIONS (7)
  - Bursitis [Not Recovered/Not Resolved]
  - Tendon injury [Not Recovered/Not Resolved]
  - Ocular hyperaemia [Unknown]
  - Muscle rigidity [Not Recovered/Not Resolved]
  - Muscle contractions involuntary [Not Recovered/Not Resolved]
  - Myalgia [Not Recovered/Not Resolved]
  - Arthralgia [Not Recovered/Not Resolved]
